FAERS Safety Report 14630237 (Version 4)
Quarter: 2020Q3

REPORT INFORMATION
  Report Type: Report from Study
  Country: NZ (occurrence: NZ)
  Receive Date: 20180313
  Receipt Date: 20180518
  Transmission Date: 20201105
  Serious: Yes (Hospitalization)
  Sender: FDA-Public Use
  Company Number: NZ-ROCHE-2082480

PATIENT
  Age: 73 Year
  Sex: Male
  Weight: 82.05 kg

DRUGS (12)
  1. IDASANUTLIN. [Suspect]
     Active Substance: IDASANUTLIN
     Indication: DIFFUSE LARGE B-CELL LYMPHOMA
     Dosage: ON 26/FEB/2018, HE RECEIVED HIS MOST RECENT DOSE OF IDASANUTLIN PRIOR TO THE ONSET OF THE ADVERSE EV
     Route: 048
     Dates: start: 20180222
  2. PARACETAMOL [Concomitant]
     Active Substance: ACETAMINOPHEN
     Indication: PAIN
     Route: 065
     Dates: start: 20180131
  3. CODEINE PHOSPHATE [Concomitant]
     Active Substance: CODEINE PHOSPHATE
     Indication: PAIN
     Route: 065
     Dates: start: 20180201
  4. CYCLIZINE [Concomitant]
     Active Substance: CYCLIZINE
     Indication: VOMITING
  5. DOMPERIDONE [Concomitant]
     Active Substance: DOMPERIDONE
     Indication: NAUSEA
     Route: 065
     Dates: start: 20180306
  6. CYCLIZINE [Concomitant]
     Active Substance: CYCLIZINE
     Indication: DIARRHOEA
     Route: 065
     Dates: start: 20180222
  7. ATORVASTATIN [Concomitant]
     Active Substance: ATORVASTATIN
     Indication: HYPERCHOLESTEROLAEMIA
     Route: 065
     Dates: start: 20130614, end: 20180123
  8. OBINUTUZUMAB. [Suspect]
     Active Substance: OBINUTUZUMAB
     Indication: DIFFUSE LARGE B-CELL LYMPHOMA
     Dosage: ON 22/FEB/2018, HE RECEIVED HIS MOST RECENT DOSE OF OBINUTUZUMAB PRIOR TO THE ONSET OF THE ADVERSE E
     Route: 042
     Dates: start: 20180125
  9. DOCUSATE SODIUM/SENNOSIDES [Concomitant]
     Active Substance: DOCUSATE SODIUM\SENNOSIDES
     Indication: CONSTIPATION
     Route: 065
     Dates: start: 20180301
  10. OXYCODONE [Concomitant]
     Active Substance: OXYCODONE
     Indication: PAIN
     Route: 065
     Dates: start: 20180307
  11. METOPROLOL. [Concomitant]
     Active Substance: METOPROLOL
     Indication: HYPERTENSION
     Route: 065
     Dates: start: 20120901
  12. LAX?SACHETS [Concomitant]
     Indication: CONSTIPATION
     Route: 065
     Dates: start: 20180307

REACTIONS (3)
  - Diarrhoea [Not Recovered/Not Resolved]
  - Acute kidney injury [Not Recovered/Not Resolved]
  - Peripheral swelling [Not Recovered/Not Resolved]

NARRATIVE: CASE EVENT DATE: 20180222
